FAERS Safety Report 18382278 (Version 1)
Quarter: 2020Q4

REPORT INFORMATION
  Report Type: Spontaneous
  Country: US (occurrence: US)
  Receive Date: 20201013
  Receipt Date: 20201013
  Transmission Date: 20210114
  Serious: Yes (Hospitalization)
  Sender: FDA-Public Use
  Company Number: None

PATIENT
  Age: 29 Year
  Sex: Male
  Weight: 71 kg

DRUGS (4)
  1. ETOPOSIDE (VP-16) [Concomitant]
     Active Substance: ETOPOSIDE
     Dates: end: 20200802
  2. IFOSFAMIDE. [Concomitant]
     Active Substance: IFOSFAMIDE
     Dates: end: 20200614
  3. TAXOL [Concomitant]
     Active Substance: PACLITAXEL
     Dates: end: 20200612
  4. CARBOPLATIN (214240) [Suspect]
     Active Substance: CARBOPLATIN
     Dates: end: 20200822

REACTIONS (1)
  - Hepatic infection [None]

NARRATIVE: CASE EVENT DATE: 20200930
